FAERS Safety Report 5899398-7 (Version None)
Quarter: 2008Q3

REPORT INFORMATION
  Report Type: 
  Country: None (occurrence: None)
  Receive Date: 20080924
  Receipt Date: 20080912
  Transmission Date: 20090109
  Serious: Yes (Death)
  Sender: FDA-Public Use
  Company Number: JPI-P-004672

PATIENT
  Age: 21 Year
  Sex: Male

DRUGS (3)
  1. XYREM [Suspect]
     Indication: DRUG USE FOR UNKNOWN INDICATION
     Dosage: 3 GM (1.5 GM, 1 IN 1 D) ,ORAL; 6 GM (3 GM, 2 IN 1 D) ,ORAL; 4.5 GM (2.25 GM, 2 IN 1 D) ,ORAL
     Route: 048
     Dates: start: 20070301, end: 20070401
  2. XYREM [Suspect]
     Indication: DRUG USE FOR UNKNOWN INDICATION
     Dosage: 3 GM (1.5 GM, 1 IN 1 D) ,ORAL; 6 GM (3 GM, 2 IN 1 D) ,ORAL; 4.5 GM (2.25 GM, 2 IN 1 D) ,ORAL
     Route: 048
     Dates: start: 20070401, end: 20080201
  3. XYREM [Suspect]
     Indication: DRUG USE FOR UNKNOWN INDICATION
     Dosage: 3 GM (1.5 GM, 1 IN 1 D) ,ORAL; 6 GM (3 GM, 2 IN 1 D) ,ORAL; 4.5 GM (2.25 GM, 2 IN 1 D) ,ORAL
     Route: 048
     Dates: start: 20080501

REACTIONS (1)
  - DEATH [None]
